FAERS Safety Report 21412257 (Version 2)
Quarter: 2022Q4

REPORT INFORMATION
  Report Type: Other
  Country: None (occurrence: US)
  Receive Date: 20221005
  Receipt Date: 20221012
  Transmission Date: 20230113
  Serious: Yes (Hospitalization)
  Sender: FDA-Public Use
  Company Number: US-Mission Pharmacal Company-2133489

PATIENT
  Age: 60 Year
  Sex: Female

DRUGS (1)
  1. THIOLA EC [Suspect]
     Active Substance: TIOPRONIN
     Indication: Cystinuria
     Route: 048
     Dates: start: 20220616

REACTIONS (4)
  - Drug ineffective [Unknown]
  - Renal pain [Unknown]
  - Product dose omission issue [Recovered/Resolved]
  - Vomiting [Recovered/Resolved]
